FAERS Safety Report 19153685 (Version 8)
Quarter: 2023Q2

REPORT INFORMATION
  Report Type: Report from Study
  Country: US (occurrence: US)
  Receive Date: 20210419
  Receipt Date: 20230425
  Transmission Date: 20230722
  Serious: Yes (Other)
  Sender: FDA-Public Use
  Company Number: US-TAKEDA-US202028456

PATIENT
  Age: 61 Year
  Sex: Female

DRUGS (4)
  1. HUMAN IMMUNOGLOBULIN G [Suspect]
     Active Substance: HUMAN IMMUNOGLOBULIN G
     Indication: Primary immunodeficiency syndrome
     Dosage: 50 GRAM, MONTHLY
     Route: 042
  2. HUMAN IMMUNOGLOBULIN G [Suspect]
     Active Substance: HUMAN IMMUNOGLOBULIN G
     Dosage: UNK
     Route: 058
  3. CUVITRU [Suspect]
     Active Substance: HUMAN IMMUNOGLOBULIN G
     Indication: Primary immunodeficiency syndrome
     Dosage: UNK
     Route: 065
  4. CUVITRU [Suspect]
     Active Substance: HUMAN IMMUNOGLOBULIN G
     Dosage: 25 GRAM, Q2WEEKS
     Route: 065

REACTIONS (17)
  - Rheumatoid arthritis [Unknown]
  - Basal cell carcinoma [Unknown]
  - Cold sweat [Unknown]
  - Vomiting [Unknown]
  - Burning sensation [Unknown]
  - Nausea [Unknown]
  - Vertebral column mass [Unknown]
  - Spinal synovial cyst [Unknown]
  - Nasopharyngitis [Recovering/Resolving]
  - Breast mass [Unknown]
  - COVID-19 [Unknown]
  - Insurance issue [Unknown]
  - Platelet count decreased [Unknown]
  - Pain [Unknown]
  - Infusion site swelling [Unknown]
  - Malaise [Unknown]
  - Inappropriate schedule of product administration [Unknown]

NARRATIVE: CASE EVENT DATE: 20210623
